FAERS Safety Report 23842119 (Version 1)
Quarter: 2024Q2

REPORT INFORMATION
  Report Type: Spontaneous
  Country: KR (occurrence: KR)
  Receive Date: 20240510
  Receipt Date: 20240510
  Transmission Date: 20240716
  Serious: Yes (Death)
  Sender: FDA-Public Use
  Company Number: KR-BoehringerIngelheim-2024-BI-026805

PATIENT
  Age: 68 Year
  Sex: Male

DRUGS (1)
  1. OFEV [Suspect]
     Active Substance: NINTEDANIB
     Indication: Rheumatoid arthritis-associated interstitial lung disease
     Route: 048
     Dates: start: 20240229

REACTIONS (1)
  - Rheumatoid arthritis-associated interstitial lung disease [Fatal]
